FAERS Safety Report 12376122 (Version 2)
Quarter: 2016Q2

REPORT INFORMATION
  Report Type: Spontaneous
  Country: US (occurrence: US)
  Receive Date: 20160517
  Receipt Date: 20160524
  Transmission Date: 20160815
  Serious: Yes (Other)
  Sender: FDA-Public Use
  Company Number: US-MDT-ADR-2016-00879

PATIENT
  Age: 43 Year
  Sex: Male

DRUGS (8)
  1. ADDERALL [Suspect]
     Active Substance: AMPHETAMINE ASPARTATE\AMPHETAMINE SULFATE\DEXTROAMPHETAMINE SACCHARATE\DEXTROAMPHETAMINE SULFATE
  2. BUPIVACAINE. [Suspect]
     Active Substance: BUPIVACAINE
     Dosage: 5.5 MG/DAY
     Route: 037
     Dates: start: 2013
  3. BACLOFEN. [Suspect]
     Active Substance: BACLOFEN
     Dosage: 120 MCG/DAY
     Route: 037
     Dates: start: 2014
  4. LEVOTHYROXINE. [Suspect]
     Active Substance: LEVOTHYROXINE
  5. DILAUDID [Suspect]
     Active Substance: HYDROMORPHONE HYDROCHLORIDE
     Dosage: 5.5 MG/DAY
     Route: 037
     Dates: start: 2013
  6. ROXICODONE [Suspect]
     Active Substance: OXYCODONE HYDROCHLORIDE
  7. AMBIEN [Suspect]
     Active Substance: ZOLPIDEM TARTRATE
  8. PHENERGAN [Suspect]
     Active Substance: PROMETHAZINE HYDROCHLORIDE

REACTIONS (6)
  - Fall [Unknown]
  - Unevaluable event [Unknown]
  - Gastrointestinal disorder [Unknown]
  - Adverse drug reaction [Unknown]
  - No therapeutic response [Unknown]
  - Monoplegia [Recovered/Resolved]

NARRATIVE: CASE EVENT DATE: 20110711
